FAERS Safety Report 4848901-4 (Version None)
Quarter: 2005Q4

REPORT INFORMATION
  Report Type: 
  Country: None (occurrence: None)
  Receive Date: 20051208
  Receipt Date: 20050414
  Transmission Date: 20060501
  Serious: Yes (Hospitalization)
  Sender: FDA-Public Use
  Company Number: US-MERCK-0504USA02624

PATIENT
  Age: 44 Year
  Sex: Male
  Weight: 111 kg

DRUGS (6)
  1. VIOXX [Suspect]
     Indication: HEADACHE
     Route: 048
     Dates: start: 20000126
  2. VIOXX [Suspect]
     Route: 048
     Dates: start: 20000126, end: 20000629
  3. VIOXX [Suspect]
     Route: 048
     Dates: start: 20000629
  4. VIOXX [Suspect]
     Route: 048
     Dates: start: 20000629
  5. SERZONE [Concomitant]
     Route: 048
     Dates: start: 20000427
  6. TYLENOL W/ CODEINE NO. 3 [Concomitant]
     Route: 048
     Dates: start: 20000126

REACTIONS (11)
  - ACUTE CORONARY SYNDROME [None]
  - ACUTE MYOCARDIAL INFARCTION [None]
  - ARTERIOSCLEROSIS CORONARY ARTERY [None]
  - BLOOD ALKALINE PHOSPHATASE ABNORMAL [None]
  - BLOOD CREATININE ABNORMAL [None]
  - CARDIAC DISORDER [None]
  - CARDIAC MURMUR [None]
  - INCREASED APPETITE [None]
  - JOINT DISLOCATION [None]
  - OSTEOARTHRITIS [None]
  - VENTRICULAR FIBRILLATION [None]
